FAERS Safety Report 10109780 (Version 2)
Quarter: 2014Q2

REPORT INFORMATION
  Report Type: Spontaneous
  Country: HR (occurrence: HR)
  Receive Date: 20140425
  Receipt Date: 20140623
  Transmission Date: 20141212
  Serious: Yes (Other)
  Sender: FDA-Public Use
  Company Number: HR-ABBVIE-14P-216-1225793-00

PATIENT
  Age: 47 Year
  Sex: Male

DRUGS (6)
  1. HUMIRA [Suspect]
     Indication: ANKYLOSING SPONDYLITIS
     Dates: start: 20140312, end: 20140407
  2. HUMIRA [Suspect]
     Indication: RHEUMATOID ARTHRITIS
     Dates: start: 20140518
  3. LUBOR [Concomitant]
     Indication: PRODUCT USED FOR UNKNOWN INDICATION
  4. ZALDIAR [Concomitant]
     Indication: PRODUCT USED FOR UNKNOWN INDICATION
     Dosage: 1-2 TBL AS NEEDED
  5. EUTIZON [Concomitant]
     Indication: PRODUCT USED FOR UNKNOWN INDICATION
  6. ISONIAZID [Concomitant]
     Indication: PRODUCT USED FOR UNKNOWN INDICATION
     Dates: start: 201401

REACTIONS (21)
  - Somnolence [Unknown]
  - Paraesthesia [Unknown]
  - Paraesthesia [Unknown]
  - Malaise [Unknown]
  - Chest discomfort [Unknown]
  - Dyspnoea [Unknown]
  - Breath sounds abnormal [Unknown]
  - Bronchitis [Unknown]
  - Rhinorrhoea [Unknown]
  - Bronchitis chronic [Unknown]
  - Pelvic pain [Unknown]
  - Pyrexia [Recovered/Resolved]
  - Chills [Unknown]
  - Cough [Recovered/Resolved]
  - Chest pain [Unknown]
  - Nausea [Unknown]
  - Dyspnoea exertional [Unknown]
  - Disturbance in attention [Unknown]
  - Unevaluable event [Unknown]
  - Depression [Unknown]
  - Head discomfort [Unknown]
